FAERS Safety Report 24104124 (Version 4)
Quarter: 2025Q1

REPORT INFORMATION
  Report Type: Spontaneous
  Country: US (occurrence: US)
  Receive Date: 20240717
  Receipt Date: 20250328
  Transmission Date: 20250409
  Serious: No
  Sender: PFIZER
  Company Number: US-PFIZER INC-PV202400092527

PATIENT
  Age: 74 Year
  Sex: Female

DRUGS (4)
  1. BRAFTOVI [Suspect]
     Active Substance: ENCORAFENIB
  2. BRAFTOVI [Suspect]
     Active Substance: ENCORAFENIB
     Dosage: 450 MG, DAILY (75 MG, 6 CAPSULE DAILY FOR 30 DAYS)
     Route: 048
  3. MEKTOVI [Suspect]
     Active Substance: BINIMETINIB
  4. MEKTOVI [Suspect]
     Active Substance: BINIMETINIB
     Dosage: 45 MG, 2X/DAY (15 MG, 3 TABS BID PER 30 DAYS)
     Route: 048

REACTIONS (1)
  - Malaise [Unknown]
